FAERS Safety Report 10272466 (Version 1)
Quarter: 2014Q2

REPORT INFORMATION
  Report Type: Spontaneous
  Country: ES (occurrence: None)
  Receive Date: 20140630
  Receipt Date: 20140630
  Transmission Date: 20141212
  Serious: Yes (Hospitalization)
  Sender: FDA-Public Use
  Company Number: ES-DEXPHARM-20140359

PATIENT
  Sex: 0

DRUGS (1)
  1. OMEPRAZOLE [Suspect]

REACTIONS (4)
  - Hypersensitivity [None]
  - Anaphylactic reaction [None]
  - Urticaria [None]
  - Angioedema [None]
